FAERS Safety Report 6585531-0 (Version None)
Quarter: 2010Q1

REPORT INFORMATION
  Report Type: 
  Country: None (occurrence: None)
  Receive Date: 20100201
  Receipt Date: 20090702
  Transmission Date: 20100710
  Serious: Yes (Other)
  Sender: FDA-Public Use
  Company Number: 8048491

PATIENT
  Age: 31 Year
  Sex: Female

DRUGS (3)
  1. KEPPRA [Suspect]
     Dosage: (200 MG BID ORAL)
     Route: 048
  2. LAMICTAL [Concomitant]
  3. TOPAMAX [Concomitant]

REACTIONS (4)
  - CONVULSION [None]
  - FALL [None]
  - FOOT FRACTURE [None]
  - SKIN LACERATION [None]
